FAERS Safety Report 16716323 (Version 1)
Quarter: 2019Q3

REPORT INFORMATION
  Report Type: Report from Study
  Country: US (occurrence: US)
  Receive Date: 20190819
  Receipt Date: 20190819
  Transmission Date: 20191005
  Serious: Yes (Hospitalization)
  Sender: FDA-Public Use
  Company Number: US-DOVA PHARMACEUTICALS INC.-DOV-000319

PATIENT
  Age: 45 Year
  Sex: Female

DRUGS (1)
  1. DOPTELET [Suspect]
     Active Substance: AVATROMBOPAG MALEATE
     Indication: THROMBOCYTOPENIA
     Dosage: 40 MG, QD
     Route: 048

REACTIONS (3)
  - Asthenia [Unknown]
  - Staphylococcal infection [Unknown]
  - Vomiting [Unknown]

NARRATIVE: CASE EVENT DATE: 20190808
